FAERS Safety Report 13810942 (Version 1)
Quarter: 2017Q3

REPORT INFORMATION
  Report Type: Spontaneous
  Country: US (occurrence: US)
  Receive Date: 20170728
  Receipt Date: 20170728
  Transmission Date: 20171127
  Serious: No
  Sender: FDA-Public Use
  Company Number: US-ROCHE-1448230

PATIENT
  Age: 83 Year
  Sex: Female
  Weight: 86.18 kg

DRUGS (3)
  1. BONIVA [Suspect]
     Active Substance: IBANDRONATE SODIUM
     Indication: OSTEOPOROSIS POSTMENOPAUSAL
     Route: 042
  2. KEFLEX [Concomitant]
     Active Substance: CEPHALEXIN
     Dosage: FOR 7 DAYS
     Route: 048
  3. CEFADROXIL. [Concomitant]
     Active Substance: CEFADROXIL
     Dosage: FOR 10 DAYS
     Route: 048

REACTIONS (4)
  - Injection site reaction [Not Recovered/Not Resolved]
  - Injection site erythema [Recovering/Resolving]
  - Discomfort [Recovering/Resolving]
  - Swelling [Recovering/Resolving]

NARRATIVE: CASE EVENT DATE: 20140707
